FAERS Safety Report 10706850 (Version 1)
Quarter: 2015Q1

REPORT INFORMATION
  Report Type: Report from Study
  Country: MX (occurrence: MX)
  Receive Date: 20150113
  Receipt Date: 20150113
  Transmission Date: 20150721
  Serious: Yes (Death, Other)
  Sender: FDA-Public Use
  Company Number: PHHY2015MX002922

PATIENT
  Sex: Female

DRUGS (5)
  1. LASIX [Concomitant]
     Active Substance: FUROSEMIDE
     Indication: SWELLING
     Dosage: UNK DF, UNK
     Route: 065
  2. METFORMINA/GLIBENCLAMIDA [Concomitant]
     Indication: DIABETES MELLITUS
     Dosage: UNK DF, UNK
     Route: 065
  3. VIVITAR [Concomitant]
     Indication: CARDIAC DISORDER
     Dosage: UNK DF, UNK
     Route: 065
  4. ETURION [Concomitant]
     Active Substance: ATORVASTATIN CALCIUM
     Indication: PRODUCT USED FOR UNKNOWN INDICATION
     Dosage: UNK DF, UNK
     Route: 065
  5. EXFORGE HCT [Suspect]
     Active Substance: AMLODIPINE BESYLATE\HYDROCHLOROTHIAZIDE\VALSARTAN
     Indication: HYPERTENSION
     Dosage: UNK DF (320/10/25 OT), UNK
     Route: 065
     Dates: start: 201205

REACTIONS (4)
  - Angina pectoris [Unknown]
  - Septic shock [Fatal]
  - Pneumonia [Fatal]
  - Multi-organ failure [Fatal]
